FAERS Safety Report 8921167 (Version 3)
Quarter: 2013Q2

REPORT INFORMATION
  Report Type: Spontaneous
  Country: FR (occurrence: FR)
  Receive Date: 20121123
  Receipt Date: 20130418
  Transmission Date: 20140414
  Serious: Yes (Hospitalization)
  Sender: FDA-Public Use
  Company Number: FR-ABBOTT-12P-056-1008750-00

PATIENT
  Age: 52 Year
  Sex: Male

DRUGS (5)
  1. NORVIR [Suspect]
     Indication: HIV INFECTION
     Dosage: MORNING INTAKE
     Route: 048
  2. REYATAZ [Suspect]
     Indication: HIV INFECTION
     Dosage: MORNING INTAKE
     Route: 048
  3. VIDEX [Suspect]
     Indication: HIV INFECTION
     Dosage: EVENING INTAKE
     Route: 048
  4. VIREAD [Suspect]
     Indication: HIV INFECTION
     Dosage: MORNING INTAKE, 1DF DAILY
  5. PARACETAMOL [Concomitant]
     Indication: PRODUCT USED FOR UNKNOWN INDICATION

REACTIONS (2)
  - Jaundice [Recovered/Resolved]
  - Hyperbilirubinaemia [Recovered/Resolved]
